FAERS Safety Report 5194542-1 (Version None)
Quarter: 2006Q4

REPORT INFORMATION
  Report Type: 
  Country: None (occurrence: None)
  Receive Date: 20061221
  Receipt Date: 20061215
  Transmission Date: 20070319
  Serious: Yes (Death)
  Sender: FDA-Public Use
  Company Number: HQWYE270215DEC06

PATIENT
  Age: 85 Year
  Sex: Female

DRUGS (5)
  1. CORDARONE [Suspect]
     Dosage: 200 MG 1X PER 1 DAY
     Route: 048
  2. PERINDOPRIL ERBUMINE [Suspect]
     Dosage: 2 MG 1X PER 1 DAY
     Route: 048
  3. DIGOXIN [Suspect]
     Dosage: 0.5 MG 1X PER 1 DAY
     Route: 048
  4. GLEEVEC [Suspect]
     Dosage: 400 MG 1X PER 1 DAY
     Route: 048
     Dates: start: 20060908
  5. PREVISCAN (FLUINDIONE) [Suspect]
     Dosage: 20 MG TABLET; DAILY FREQUENCY NOT SPECIFIED
     Route: 048

REACTIONS (1)
  - SUDDEN DEATH [None]
